FAERS Safety Report 7210192-7 (Version None)
Quarter: 2011Q1

REPORT INFORMATION
  Report Type: 
  Country: None (occurrence: None)
  Receive Date: 20110105
  Receipt Date: 20110103
  Transmission Date: 20110831
  Serious: No
  Sender: FDA-Public Use
  Company Number: US-JNJFOC-20110100605

PATIENT
  Sex: Male
  Weight: 84.82 kg

DRUGS (4)
  1. XANAX [Concomitant]
     Indication: NERVOUSNESS
     Route: 048
  2. FENTANYL-100 [Suspect]
     Indication: SURGERY
     Route: 065
  3. FENTANYL-100 [Suspect]
     Indication: BACK PAIN
     Route: 065
  4. FENTANYL-100 [Suspect]
     Indication: NERVE INJURY
     Route: 065

REACTIONS (2)
  - PRODUCT ADHESION ISSUE [None]
  - WRONG TECHNIQUE IN DRUG USAGE PROCESS [None]
